FAERS Safety Report 8964959 (Version 1)
Quarter: 2012Q4

REPORT INFORMATION
  Report Type: 
  Country: AU (occurrence: AU)
  Receive Date: 20121214
  Receipt Date: 20121214
  Transmission Date: 20130627
  Serious: Yes (Life-Threatening, Other)
  Sender: FDA-Public Use
  Company Number: AU-PERRIGO-12AU010396

PATIENT
  Age: 22 Year
  Sex: Male

DRUGS (2)
  1. MESALAMINE [Suspect]
     Indication: COLITIS ULCERATIVE
     Dosage: UNK, UNK
     Route: 054
  2. SULFASALAZINE [Suspect]
     Indication: COLITIS ULCERATIVE
     Dosage: UNK, UNK
     Route: 048

REACTIONS (9)
  - Cardiogenic shock [Recovering/Resolving]
  - Pericardial effusion [Recovering/Resolving]
  - Multi-organ failure [Recovering/Resolving]
  - Ischaemic hepatitis [Recovering/Resolving]
  - Renal tubular necrosis [Recovering/Resolving]
  - Lupus-like syndrome [Recovering/Resolving]
  - Cardiac tamponade [Recovering/Resolving]
  - Influenza like illness [Recovering/Resolving]
  - Serositis [Recovering/Resolving]
